FAERS Safety Report 24926848 (Version 1)
Quarter: 2025Q1

REPORT INFORMATION
  Report Type: Spontaneous
  Country: US (occurrence: US)
  Receive Date: 20250205
  Receipt Date: 20250205
  Transmission Date: 20250409
  Serious: Yes (Hospitalization, Other)
  Sender: GLAND PHARMA LTD
  Company Number: US-GLANDPHARMA-US-2025GLNLIT00142

PATIENT
  Age: 62 Year
  Sex: Male

DRUGS (5)
  1. MELPHALAN HYDROCHLORIDE [Suspect]
     Active Substance: MELPHALAN HYDROCHLORIDE
     Indication: Autologous haematopoietic stem cell transplant
     Route: 065
  2. DEFIBROTIDE [Concomitant]
     Active Substance: DEFIBROTIDE (BOVINE)
     Indication: Venoocclusive liver disease
     Route: 065
  3. DEFIBROTIDE [Concomitant]
     Active Substance: DEFIBROTIDE (BOVINE)
  4. URSODIOL [Concomitant]
     Active Substance: URSODIOL
     Indication: Venoocclusive liver disease
     Route: 065
  5. URSODIOL [Concomitant]
     Active Substance: URSODIOL

REACTIONS (2)
  - Drug-induced liver injury [Unknown]
  - Product use in unapproved indication [Unknown]
